FAERS Safety Report 10960820 (Version 1)
Quarter: 2015Q1

REPORT INFORMATION
  Report Type: Spontaneous
  Country: US (occurrence: None)
  Receive Date: 20150326
  Receipt Date: 20150326
  Transmission Date: 20150721
  Serious: Yes (Disabling)
  Sender: FDA-Public Use
  Company Number: None

PATIENT
  Age: 43 Year
  Sex: Male

DRUGS (1)
  1. DEPAKOTE [Suspect]
     Active Substance: DIVALPROEX SODIUM
     Indication: DEPRESSION
     Route: 048
     Dates: start: 2004, end: 2006

REACTIONS (6)
  - Amnesia [None]
  - Visual impairment [None]
  - Vision blurred [None]
  - Suicidal ideation [None]
  - Depression [None]
  - Gynaecomastia [None]

NARRATIVE: CASE EVENT DATE: 2004
